FAERS Safety Report 6171279-3 (Version None)
Quarter: 2009Q2

REPORT INFORMATION
  Report Type: 
  Country: None (occurrence: None)
  Receive Date: 20090427
  Receipt Date: 20090416
  Transmission Date: 20091009
  Serious: Yes (Life-Threatening, Hospitalization)
  Sender: FDA-Public Use
  Company Number: 2009-195157-NL

PATIENT
  Age: 64 Year
  Sex: Female

DRUGS (3)
  1. ROCURONIUM BROMIDE [Suspect]
     Indication: GENERAL ANAESTHESIA
  2. FENTANYL [Concomitant]
  3. PROPOFOL [Concomitant]

REACTIONS (7)
  - ARRHYTHMIA [None]
  - ELECTROCARDIOGRAM ST SEGMENT DEPRESSION [None]
  - FACE OEDEMA [None]
  - HYPOTENSION [None]
  - LIP SWELLING [None]
  - PERIORBITAL OEDEMA [None]
  - SWOLLEN TONGUE [None]
